FAERS Safety Report 17593355 (Version 1)
Quarter: 2020Q1

REPORT INFORMATION
  Report Type: Spontaneous
  Country: US (occurrence: US)
  Receive Date: 20200327
  Receipt Date: 20200327
  Transmission Date: 20200409
  Serious: No
  Sender: FDA-Public Use
  Company Number: US-ASTRAZENECA-2020SE31072

PATIENT
  Sex: Male
  Weight: 99.8 kg

DRUGS (2)
  1. METFORMIN [Concomitant]
     Active Substance: METFORMIN HYDROCHLORIDE
     Route: 065
  2. BYDUREON BCISE [Suspect]
     Active Substance: EXENATIDE
     Indication: DIABETES MELLITUS
     Route: 055
     Dates: start: 2018

REACTIONS (6)
  - Intentional device misuse [Unknown]
  - Weight decreased [Unknown]
  - Cough [Recovering/Resolving]
  - Laboratory test abnormal [Unknown]
  - Device issue [Unknown]
  - Influenza [Recovering/Resolving]
